FAERS Safety Report 12341179 (Version 1)
Quarter: 2016Q2

REPORT INFORMATION
  Report Type: Spontaneous
  Country: CA (occurrence: CA)
  Receive Date: 20160506
  Receipt Date: 20160506
  Transmission Date: 20160815
  Serious: Yes (Life-Threatening)
  Sender: FDA-Public Use
  Company Number: CA-JNJFOC-20160504058

PATIENT
  Age: 82 Year
  Sex: Male

DRUGS (3)
  1. XARELTO [Suspect]
     Active Substance: RIVAROXABAN
     Indication: CEREBROVASCULAR ACCIDENT PROPHYLAXIS
     Route: 048
  2. XARELTO [Suspect]
     Active Substance: RIVAROXABAN
     Indication: ATRIAL FIBRILLATION
     Route: 048
  3. CLARITHROMYCIN. [Concomitant]
     Active Substance: CLARITHROMYCIN
     Route: 065

REACTIONS (7)
  - Ventricular fibrillation [Unknown]
  - Asthenia [Unknown]
  - Acute myocardial infarction [Unknown]
  - Faeces discoloured [Unknown]
  - Blood pressure decreased [Unknown]
  - Hypophagia [Unknown]
  - Gastrointestinal haemorrhage [Unknown]
